FAERS Safety Report 9790555 (Version 3)
Quarter: 2014Q1

REPORT INFORMATION
  Report Type: Spontaneous
  Country: US (occurrence: US)
  Receive Date: 20131231
  Receipt Date: 20140318
  Transmission Date: 20141002
  Serious: Yes (Hospitalization)
  Sender: FDA-Public Use
  Company Number: US-PFIZER INC-2013369511

PATIENT
  Age: 81 Year
  Sex: Female

DRUGS (1)
  1. SUTENT [Suspect]
     Indication: RENAL CANCER METASTATIC
     Dosage: 50 MG, DAILY
     Route: 048
     Dates: start: 20131129, end: 20131224

REACTIONS (6)
  - Cystitis [Unknown]
  - Dyspepsia [Unknown]
  - Glossodynia [Unknown]
  - Tongue disorder [Unknown]
  - Retching [Unknown]
  - Fatigue [Unknown]
